FAERS Safety Report 21953930 (Version 1)
Quarter: 2023Q1

REPORT INFORMATION
  Report Type: Spontaneous
  Country: AU (occurrence: AU)
  Receive Date: 20230204
  Receipt Date: 20230204
  Transmission Date: 20230417
  Serious: Yes (Other)
  Sender: FDA-Public Use
  Company Number: AU-BAXTER-2023BAX012015

PATIENT
  Sex: Male

DRUGS (13)
  1. DOXORUBICIN [Suspect]
     Active Substance: DOXORUBICIN
     Indication: Diffuse large B-cell lymphoma
     Dosage: (START DATE: 2007), AS PART OF R-CHOP THERAPY
     Route: 065
  2. CYCLOPHOSPHAMIDE [Suspect]
     Active Substance: CYCLOPHOSPHAMIDE
     Indication: Diffuse large B-cell lymphoma
     Dosage: (START DATE:2007), AS PART OF R-CHOP CHEMOTHERAPY
     Route: 065
  3. CYCLOPHOSPHAMIDE [Suspect]
     Active Substance: CYCLOPHOSPHAMIDE
     Indication: Marginal zone lymphoma recurrent
     Dosage: (START DATE:2018), AS PART OF R-CVP SIX CYCLES
     Route: 065
  4. IFOSFAMIDE [Suspect]
     Active Substance: IFOSFAMIDE
     Indication: Diffuse large B-cell lymphoma
     Dosage: (START DATE: 2020), AS PART OF ICE CHEMOTHERAPY
     Route: 065
  5. RITUXIMAB [Suspect]
     Active Substance: RITUXIMAB
     Indication: Diffuse large B-cell lymphoma
     Dosage: (START DATE:2007), AS PART OF R-CHOP CHEMOTHERAPY
     Route: 065
  6. RITUXIMAB [Suspect]
     Active Substance: RITUXIMAB
     Indication: Marginal zone lymphoma stage IV
     Dosage: (START DATE: 2018), AS PART OF R-CVP SIX CYCLES
     Route: 065
  7. RITUXIMAB [Suspect]
     Active Substance: RITUXIMAB
     Indication: Marginal zone lymphoma recurrent
  8. PREDNISONE [Suspect]
     Active Substance: PREDNISONE
     Indication: Diffuse large B-cell lymphoma
     Dosage: (START DATE:2007), AS PART OF R-CHOP CHEMOTHERAPY
     Route: 065
  9. PREDNISONE [Suspect]
     Active Substance: PREDNISONE
     Indication: Marginal zone lymphoma recurrent
     Dosage: (START DATE: 2018), AS PART OF R-CVP SIX CYCLES
     Route: 065
  10. VINCRISTINE SULFATE [Suspect]
     Active Substance: VINCRISTINE SULFATE
     Indication: Diffuse large B-cell lymphoma
     Dosage: (START DATE:2007), AS PART OF R-CHOP CHEMOTHERAPY
     Route: 065
  11. VINCRISTINE SULFATE [Suspect]
     Active Substance: VINCRISTINE SULFATE
     Indication: Marginal zone lymphoma recurrent
     Dosage: (START DATE: 2018), AS PART OF R-CVP SIX CYCLES
     Route: 065
  12. CARBOPLATIN [Suspect]
     Active Substance: CARBOPLATIN
     Indication: Diffuse large B-cell lymphoma
     Dosage: (START DATE: 2020), AS PART OF ICE CHEMOTHERAPY
     Route: 065
  13. ETOPOSIDE [Suspect]
     Active Substance: ETOPOSIDE
     Indication: Diffuse large B-cell lymphoma
     Dosage: (START DATE: 2020), AS PART OF ICE CHEMOTHERAPY
     Route: 065

REACTIONS (6)
  - Marginal zone lymphoma stage IV [Recovered/Resolved]
  - Marginal zone lymphoma recurrent [Recovered/Resolved]
  - Marginal zone lymphoma recurrent [Unknown]
  - Therapy partial responder [Unknown]
  - Pulmonary mass [Unknown]
  - Bone marrow disorder [Unknown]
